FAERS Safety Report 8384660-9 (Version None)
Quarter: 2012Q2

REPORT INFORMATION
  Report Type: 
  Country: None (occurrence: None)
  Receive Date: 20120524
  Receipt Date: 20120518
  Transmission Date: 20120825
  Serious: Yes (Other)
  Sender: FDA-Public Use
  Company Number: GB-BAUSCH-2012BL002544

PATIENT
  Age: 48 Year
  Sex: Female
  Weight: 70 kg

DRUGS (15)
  1. PACLITAXEL [Suspect]
     Indication: BREAST CANCER
     Route: 042
     Dates: start: 20110621, end: 20110705
  2. PEGFILGRASTIM [Suspect]
     Indication: PRODUCT USED FOR UNKNOWN INDICATION
     Route: 058
  3. CYTOXAN [Concomitant]
     Indication: BREAST CANCER
     Dates: start: 20110329, end: 20110510
  4. DOMPERIDONE [Suspect]
     Indication: PRODUCT USED FOR UNKNOWN INDICATION
     Route: 048
  5. PACLITAXEL [Suspect]
     Route: 042
     Dates: start: 20110524, end: 20120607
  6. BIOTENE [Concomitant]
  7. DEXAMETHASONE [Suspect]
     Route: 042
  8. PACLITAXEL [Suspect]
     Route: 042
     Dates: start: 20110524, end: 20120607
  9. CHLORPHENIRAMINE TAB [Suspect]
     Indication: PRODUCT USED FOR UNKNOWN INDICATION
     Route: 042
  10. PACLITAXEL [Suspect]
     Route: 042
     Dates: start: 20110621, end: 20110705
  11. RANITIDINE [Suspect]
     Indication: PRODUCT USED FOR UNKNOWN INDICATION
     Route: 042
  12. DOXORUBICIN HCL [Concomitant]
     Indication: BREAST CANCER
     Dates: start: 20110329, end: 20110510
  13. GRANISETRON [Suspect]
     Indication: PRODUCT USED FOR UNKNOWN INDICATION
     Route: 048
  14. DOCUSATE [Concomitant]
     Route: 048
  15. DEXAMETHASONE [Suspect]
     Indication: PRODUCT USED FOR UNKNOWN INDICATION
     Route: 048

REACTIONS (5)
  - FATIGUE [None]
  - CHEST PAIN [None]
  - CHEST DISCOMFORT [None]
  - RESPIRATORY DEPTH DECREASED [None]
  - DYSPNOEA [None]
